FAERS Safety Report 8017697 (Version 6)
Quarter: 2013Q4

REPORT INFORMATION
  Report Type: Report from Study
  Country: US (occurrence: US)
  Receive Date: 20110630
  Receipt Date: 20131129
  Transmission Date: 20140711
  Serious: Yes (Other)
  Sender: FDA-Public Use
  Company Number: PHHY2011US55747

PATIENT
  Age: 48 Year
  Sex: Male
  Weight: 113.38 kg

DRUGS (6)
  1. GILENYA [Suspect]
     Indication: MULTIPLE SCLEROSIS
     Dosage: 0.5 MG, QD
     Route: 048
     Dates: start: 20110607
  2. XANAX [Concomitant]
     Dosage: 0.25 MG, UNK
  3. METFORMIN [Concomitant]
     Dosage: 500 MG, UNK
  4. AMANTADINE [Concomitant]
     Dosage: 100 MG, UNK
  5. LEXAPRO [Concomitant]
     Dosage: 5 MG, UNK
  6. VITAMIN B12 [Concomitant]
     Dosage: 250 UG, UNK

REACTIONS (1)
  - Suicidal ideation [Recovered/Resolved]
